FAERS Safety Report 9465614 (Version 2)
Quarter: 2013Q4

REPORT INFORMATION
  Report Type: Spontaneous
  Country: DE (occurrence: DE)
  Receive Date: 20130820
  Receipt Date: 20131106
  Transmission Date: 20140711
  Serious: Yes (Other)
  Sender: FDA-Public Use
  Company Number: DE-UCBSA-095224

PATIENT
  Age: 46 Year
  Sex: Male
  Weight: 85 kg

DRUGS (9)
  1. LEVETIRACETAM [Suspect]
     Indication: PROPHYLAXIS
     Dosage: 2000 MG
     Route: 042
     Dates: start: 20130605, end: 20130619
  2. METAMIZOL [Suspect]
     Indication: ANTIPYRESIS
     Dosage: 1000 MG
     Route: 042
     Dates: start: 20130615, end: 20130617
  3. MEROPENEM [Concomitant]
     Indication: INFECTION
     Dosage: 3000 MG
     Route: 042
     Dates: start: 20130617
  4. RANITIDIN [Concomitant]
     Indication: DERMATITIS ALLERGIC
     Dosage: 50 MG
     Route: 042
     Dates: start: 20130610, end: 20130619
  5. DIMETINDENE [Concomitant]
     Indication: DERMATITIS ALLERGIC
     Dosage: 4 MG
     Route: 042
     Dates: start: 20130610, end: 20130619
  6. HYDROCHLOROTHIAZIDE [Concomitant]
  7. METOPROLOL [Concomitant]
  8. FENTANYL [Concomitant]
  9. MIDAZOLAM [Concomitant]

REACTIONS (2)
  - Neutropenia [Recovering/Resolving]
  - Rash [Recovering/Resolving]
